FAERS Safety Report 10751358 (Version 1)
Quarter: 2015Q1

REPORT INFORMATION
  Report Type: Spontaneous
  Country: US (occurrence: None)
  Receive Date: 20150126
  Receipt Date: 20150126
  Transmission Date: 20150721
  Serious: Yes (Life-Threatening, Hospitalization, Other)
  Sender: FDA-Public Use
  Company Number: A-US2014-94098

PATIENT
  Age: 68 Year
  Sex: Female

DRUGS (5)
  1. ASPIRIN (ACETYLSALICYLIC ACID) [Concomitant]
     Active Substance: ASPIRIN
  2. TRACLEER [Suspect]
     Active Substance: BOSENTAN\BOSENTAN MONOHYDRATE
     Indication: PULMONARY ARTERIAL HYPERTENSION
     Route: 048
     Dates: start: 20140612, end: 20140808
  3. SILDENAFIL. [Concomitant]
     Active Substance: SILDENAFIL
  4. WARFARIN (WARFARIN SODIUM) [Concomitant]
  5. TYVASO [Concomitant]
     Active Substance: TREPROSTINIL

REACTIONS (6)
  - Iron deficiency anaemia [None]
  - Oedema [None]
  - Haemoglobin decreased [None]
  - Transfusion [None]
  - Red blood cell count decreased [None]
  - Fluid overload [None]

NARRATIVE: CASE EVENT DATE: 20140103
